FAERS Safety Report 13713832 (Version 1)
Quarter: 2017Q3

REPORT INFORMATION
  Report Type: Spontaneous
  Country: AU (occurrence: AU)
  Receive Date: 20170704
  Receipt Date: 20170704
  Transmission Date: 20171127
  Serious: No
  Sender: FDA-Public Use
  Company Number: AU-LUPIN PHARMACEUTICALS INC.-2017-02162

PATIENT
  Sex: Female

DRUGS (6)
  1. HYDROXYCHLOROQUINE [Suspect]
     Active Substance: HYDROXYCHLOROQUINE
     Indication: CHRONIC SPONTANEOUS URTICARIA
     Dosage: 400 MG, QD
     Route: 065
  2. METHOTREXATE. [Suspect]
     Active Substance: METHOTREXATE
     Indication: CHRONIC SPONTANEOUS URTICARIA
     Dosage: 15 MG, WEEKLY
     Route: 065
  3. CETIRIZINE [Suspect]
     Active Substance: CETIRIZINE HYDROCHLORIDE
     Indication: CHRONIC SPONTANEOUS URTICARIA
     Dosage: QUADRUPLE-DOSED
     Route: 065
  4. MONTELUKAST [Suspect]
     Active Substance: MONTELUKAST SODIUM
     Indication: CHRONIC SPONTANEOUS URTICARIA
     Dosage: UNK
     Route: 065
  5. FEXOFENADINE [Suspect]
     Active Substance: FEXOFENADINE\FEXOFENADINE HYDROCHLORIDE
     Indication: CHRONIC SPONTANEOUS URTICARIA
     Dosage: QUADRUPLE-DOSED
     Route: 065
  6. RANITIDINE. [Suspect]
     Active Substance: RANITIDINE
     Indication: CHRONIC SPONTANEOUS URTICARIA
     Dosage: 150 MG, BID
     Route: 065

REACTIONS (2)
  - Drug ineffective [Unknown]
  - Impaired quality of life [Unknown]
